FAERS Safety Report 9492682 (Version 2)
Quarter: 2013Q3

REPORT INFORMATION
  Report Type: Spontaneous
  Country: US (occurrence: US)
  Receive Date: 20130830
  Receipt Date: 20130830
  Transmission Date: 20140515
  Serious: Yes (Other)
  Sender: FDA-Public Use
  Company Number: US-LUNDBECK-DKLU1081695

PATIENT
  Age: 24 Year
  Sex: Male
  Weight: 87 kg

DRUGS (12)
  1. ONFI [Suspect]
     Indication: LENNOX-GASTAUT SYNDROME
     Dates: start: 20120319
  2. ONFI [Suspect]
     Dates: start: 20120402
  3. ONFI [Suspect]
     Dates: start: 20120416
  4. ONFI [Suspect]
     Dates: start: 20120416
  5. ONFI [Suspect]
     Dates: start: 20120430
  6. ONFI [Suspect]
     Dates: start: 201302
  7. ONFI [Suspect]
     Dates: start: 201302
  8. BANZEL [Concomitant]
     Indication: LENNOX-GASTAUT SYNDROME
     Dates: start: 2009
  9. TOPAMAX [Concomitant]
     Indication: PRODUCT USED FOR UNKNOWN INDICATION
     Dosage: 4
     Dates: start: 2004, end: 201208
  10. LAMICTAL [Concomitant]
     Indication: PRODUCT USED FOR UNKNOWN INDICATION
     Dates: start: 1999
  11. CLONAZEPAM [Concomitant]
     Indication: PRODUCT USED FOR UNKNOWN INDICATION
     Dosage: 1
     Route: 048
  12. MULTIVITAMINS [Concomitant]
     Indication: PRODUCT USED FOR UNKNOWN INDICATION
     Dosage: 1
     Route: 048

REACTIONS (2)
  - Urinary retention [Not Recovered/Not Resolved]
  - Rash [Recovered/Resolved]
